FAERS Safety Report 13987267 (Version 1)
Quarter: 2017Q3

REPORT INFORMATION
  Report Type: Spontaneous
  Country: CA (occurrence: CA)
  Receive Date: 20170919
  Receipt Date: 20170919
  Transmission Date: 20171128
  Serious: Yes (Hospitalization)
  Sender: FDA-Public Use
  Company Number: CA-BAYER-2017-177479

PATIENT
  Age: 27 Year
  Sex: Female
  Weight: 77 kg

DRUGS (1)
  1. YASMIN [Suspect]
     Active Substance: DROSPIRENONE\ETHINYL ESTRADIOL
     Indication: CONTRACEPTION
     Dosage: 1 DF, QD
     Route: 048

REACTIONS (6)
  - Pain in extremity [Recovering/Resolving]
  - Intracranial venous sinus thrombosis [Recovering/Resolving]
  - Muscular weakness [Recovering/Resolving]
  - Cerebral haemorrhage [Recovering/Resolving]
  - Photophobia [Recovering/Resolving]
  - Headache [Recovering/Resolving]
